FAERS Safety Report 4775717-X (Version None)
Quarter: 2005Q3

REPORT INFORMATION
  Report Type: 
  Country: None (occurrence: None)
  Receive Date: 20050920
  Receipt Date: 20050920
  Transmission Date: 20060218
  Serious: Yes (Hospitalization)
  Sender: FDA-Public Use
  Company Number: None

PATIENT
  Age: 43 Year
  Sex: Male
  Weight: 58.9676 kg

DRUGS (6)
  1. UROXATRAL [Suspect]
     Indication: BENIGN PROSTATIC HYPERPLASIA
     Dosage: 10 MG DAILY PO
     Route: 048
  2. METFORMIN HCL [Concomitant]
  3. DEPAKOTE ER [Concomitant]
  4. ENALAPRIL [Concomitant]
  5. ABILIFY [Concomitant]
  6. EFFEXOR XR [Concomitant]

REACTIONS (4)
  - ASTHENIA [None]
  - DIZZINESS [None]
  - PENILE PAIN [None]
  - SPONTANEOUS PENILE ERECTION [None]
